FAERS Safety Report 9037680 (Version 1)
Quarter: 2013Q1

REPORT INFORMATION
  Report Type: Spontaneous
  Country: US (occurrence: US)
  Receive Date: 20130129
  Receipt Date: 20130129
  Transmission Date: 20140127
  Serious: No
  Sender: FDA-Public Use
  Company Number: US-BIOGENIDEC-2013BI007221

PATIENT
  Sex: Female

DRUGS (3)
  1. AVONEX [Suspect]
     Indication: MULTIPLE SCLEROSIS
     Route: 030
     Dates: start: 20020920
  2. RITALIN [Concomitant]
     Indication: PRODUCT USED FOR UNKNOWN INDICATION
  3. OXYCONTIN [Concomitant]
     Indication: PRODUCT USED FOR UNKNOWN INDICATION

REACTIONS (12)
  - Injection site induration [Unknown]
  - Aphasia [Unknown]
  - Coordination abnormal [Unknown]
  - Memory impairment [Unknown]
  - Back disorder [Unknown]
  - Nasopharyngitis [Unknown]
  - Upper limb fracture [Unknown]
  - Logorrhoea [Not Recovered/Not Resolved]
  - Rotator cuff syndrome [Unknown]
  - Muscle rupture [Unknown]
  - Drug dependence [Recovered/Resolved]
  - Influenza like illness [Unknown]
